FAERS Safety Report 9314196 (Version 1)
Quarter: 2013Q2

REPORT INFORMATION
  Report Type: Spontaneous
  Country: JP (occurrence: JP)
  Receive Date: 20130529
  Receipt Date: 20130529
  Transmission Date: 20140414
  Serious: Yes (Hospitalization)
  Sender: FDA-Public Use
  Company Number: JP-PFIZER INC-2013150229

PATIENT
  Age: 28 Year
  Sex: Male

DRUGS (4)
  1. VORICONAZOLE [Suspect]
     Indication: ASPERGILLUS INFECTION
  2. FLUCONAZOLE [Suspect]
     Indication: PROPHYLAXIS
     Dosage: 200 MG, 1X/DAY
  3. MICAFUNGIN [Suspect]
     Indication: PYREXIA
     Dosage: 150 MG, 1X/DAY
  4. PREDNISOLONE [Suspect]
     Indication: ACUTE GRAFT VERSUS HOST DISEASE
     Dosage: 1 MG/KG

REACTIONS (1)
  - Zygomycosis [Recovered/Resolved]
